FAERS Safety Report 6326668-0 (Version None)
Quarter: 2009Q3

REPORT INFORMATION
  Report Type: 
  Country: None (occurrence: None)
  Receive Date: 20090825
  Receipt Date: 20090813
  Transmission Date: 20100115
  Serious: Yes (Other)
  Sender: FDA-Public Use
  Company Number: GB-PFIZER INC-2009254438

PATIENT
  Age: 55 Year

DRUGS (3)
  1. VFEND [Suspect]
     Dosage: 300 MG, 2X/DAY
  2. CIPROFLOXACIN [Concomitant]
  3. IBUPROFEN [Concomitant]

REACTIONS (2)
  - HALLUCINATION, VISUAL [None]
  - NARCOLEPSY [None]
